FAERS Safety Report 7693137-5 (Version None)
Quarter: 2011Q3

REPORT INFORMATION
  Report Type: 
  Country: None (occurrence: None)
  Receive Date: 20110819
  Receipt Date: 20110816
  Transmission Date: 20111222
  Serious: Yes (Death, Disabling, Other)
  Sender: FDA-Public Use
  Company Number: GB-PFIZER INC-2011189038

PATIENT
  Age: 50 Year
  Sex: Male

DRUGS (2)
  1. SUNITINIB MALATE [Suspect]
     Indication: RENAL CELL CARCINOMA
     Dosage: 50 MG, 1X/DAY, FOR 4 WEEKS THEN 2 WEEKS OFF
     Route: 048
     Dates: start: 20080723
  2. ZOMETA [Suspect]
     Indication: METASTASES TO BONE
     Dosage: 4 MG, UNK
     Route: 042
     Dates: start: 20080401, end: 20091101

REACTIONS (11)
  - OSTEOMYELITIS [None]
  - GINGIVAL INFECTION [None]
  - TOOTH LOSS [None]
  - EXPOSED BONE IN JAW [None]
  - PAIN [None]
  - OSTEONECROSIS OF JAW [None]
  - SOFT TISSUE INFECTION [None]
  - DISEASE PROGRESSION [None]
  - FISTULA [None]
  - RENAL CELL CARCINOMA [None]
  - ABSCESS [None]
